FAERS Safety Report 5527496-6 (Version None)
Quarter: 2007Q4

REPORT INFORMATION
  Report Type: 
  Country: None (occurrence: None)
  Receive Date: 20071128
  Receipt Date: 20071116
  Transmission Date: 20080405
  Serious: Yes (Hospitalization)
  Sender: FDA-Public Use
  Company Number: US-BRISTOL-MYERS SQUIBB COMPANY-13798822

PATIENT
  Age: 69 Year
  Sex: Female
  Weight: 105 kg

DRUGS (16)
  1. PACLITAXEL [Suspect]
     Indication: NON-SMALL CELL LUNG CANCER
     Dosage: TOTAL DAILY DOSE OF 390 MG FROM 08MAY2007 TO 08MAY2007
     Route: 042
     Dates: start: 20070508, end: 20070801
  2. CARBAMAZEPINE [Concomitant]
     Route: 048
     Dates: start: 20070507, end: 20070515
  3. ZOFRAN [Concomitant]
     Route: 048
     Dates: start: 20070514
  4. COMPAZINE [Concomitant]
     Route: 048
     Dates: start: 20070514
  5. TYLENOL (CAPLET) [Concomitant]
     Indication: PAIN
     Dosage: FREQUENCY = AS NEEDED
     Route: 048
     Dates: start: 19980101
  6. TUMS [Concomitant]
     Route: 048
  7. AMOXICILLIN [Concomitant]
     Dosage: PRIOR TO ANY PROCEDURE
     Route: 048
     Dates: start: 20060101
  8. VITAMIN CAP [Concomitant]
     Route: 048
  9. DETROL [Concomitant]
     Indication: INCONTINENCE
     Route: 048
     Dates: start: 20060601
  10. CHONDROITIN SULFATE + GLUCOSAMINE [Concomitant]
     Route: 048
     Dates: start: 19980101
  11. FELDENE [Concomitant]
     Route: 048
     Dates: start: 20030101
  12. DYAZIDE [Concomitant]
     Dosage: 1 DOSAGE FORM = 37.5/25 MG
     Route: 048
     Dates: start: 20030101
  13. ASPIRIN [Concomitant]
     Route: 048
  14. DEXAMETHASONE [Concomitant]
     Route: 042
     Dates: start: 20070508
  15. KYTRIL [Concomitant]
     Route: 048
     Dates: start: 20070508
  16. DIPHENHYDRAMINE HCL [Concomitant]
     Route: 048
     Dates: start: 20070508

REACTIONS (3)
  - HYPONATRAEMIA [None]
  - NAUSEA [None]
  - VOMITING [None]
